FAERS Safety Report 8416636-7 (Version None)
Quarter: 2012Q2

REPORT INFORMATION
  Report Type: 
  Country: None (occurrence: None)
  Receive Date: 20120606
  Receipt Date: 20120524
  Transmission Date: 20120825
  Serious: Yes (Other)
  Sender: FDA-Public Use
  Company Number: US-RB-040924-12

PATIENT
  Age: 32 Year
  Sex: Female

DRUGS (9)
  1. IBUPROFEN [Concomitant]
     Indication: PAIN
     Dosage: UNKNOWN DOSAGE DETAILS
     Route: 065
  2. ADDERALL 5 [Concomitant]
     Indication: ATTENTION DEFICIT/HYPERACTIVITY DISORDER
     Dosage: UNKNOWN DOSAGE DETAILS
     Route: 065
  3. VALIUM [Concomitant]
     Indication: ANXIETY DISORDER
     Dosage: UNKNOWN DOSAGE DETAILS
     Route: 065
  4. SUBOXONE [Suspect]
     Indication: DRUG DEPENDENCE
     Dosage: VARIOUS DOSES
     Route: 060
     Dates: start: 20100501, end: 20101001
  5. SUBOXONE [Suspect]
     Route: 060
     Dates: start: 20101001, end: 20101201
  6. NEURONTIN [Concomitant]
     Indication: DEPRESSION
     Dosage: UNKNOWN DOSAGE DETAILS
     Route: 065
  7. SUBOXONE [Suspect]
     Indication: DRUG DEPENDENCE
     Route: 060
     Dates: start: 20101201
  8. LEXAPRO [Concomitant]
     Indication: DEPRESSION
     Dosage: UNKNOWN DOSAGE DETAILS
     Route: 065
     Dates: start: 20120201
  9. NEURONTIN [Concomitant]
     Dosage: UNKNOWN DOSAGE DETAILS
     Route: 065

REACTIONS (2)
  - CONVULSION [None]
  - SUBSTANCE ABUSE [None]
